FAERS Safety Report 5317346-5 (Version None)
Quarter: 2007Q2

REPORT INFORMATION
  Report Type: 
  Country: None (occurrence: None)
  Receive Date: 20070504
  Receipt Date: 20070424
  Transmission Date: 20071010
  Serious: Yes (Other)
  Sender: FDA-Public Use
  Company Number: JP-PFIZER INC-2007034237

PATIENT
  Age: 77 Year
  Sex: Female

DRUGS (2)
  1. GABAPEN [Suspect]
     Route: 048
  2. TEGRETOL [Suspect]
     Indication: HEADACHE
     Dosage: DAILY DOSE:200MG
     Route: 048

REACTIONS (3)
  - DIZZINESS [None]
  - INCORRECT DOSE ADMINISTERED [None]
  - NAUSEA [None]
